FAERS Safety Report 6577526-8 (Version None)
Quarter: 2010Q1

REPORT INFORMATION
  Report Type: 
  Country: None (occurrence: None)
  Receive Date: 20100211
  Receipt Date: 20100129
  Transmission Date: 20100710
  Serious: Yes (Other)
  Sender: FDA-Public Use
  Company Number: GB-ASTRAZENECA-2010SE04127

PATIENT

DRUGS (1)
  1. MARCAIN POLYAMP STERIPACK [Suspect]
     Indication: NERVE BLOCK
     Route: 037

REACTIONS (1)
  - INCORRECT ROUTE OF DRUG ADMINISTRATION [None]
